FAERS Safety Report 4558619-3 (Version None)
Quarter: 2005Q1

REPORT INFORMATION
  Report Type: 
  Country: None (occurrence: None)
  Receive Date: 20050119
  Receipt Date: 20040106
  Transmission Date: 20050727
  Serious: Yes (Other)
  Sender: FDA-Public Use
  Company Number: 2005006979

PATIENT
  Sex: Male
  Weight: 104.3273 kg

DRUGS (3)
  1. CELEBREX [Suspect]
     Indication: ARTHRITIS
     Dosage: 200 MG (200 MG, 1 IN 1 D), ORAL
     Route: 048
     Dates: start: 19980101
  2. FLUTICASONE PROPIONATE [Concomitant]
  3. ATENOLOL [Concomitant]

REACTIONS (3)
  - CARTILAGE INJURY [None]
  - DIFFICULTY IN WALKING [None]
  - FALL [None]
